FAERS Safety Report 7775334-3 (Version None)
Quarter: 2011Q3

REPORT INFORMATION
  Report Type: 
  Country: None (occurrence: None)
  Receive Date: 20110921
  Receipt Date: 20110916
  Transmission Date: 20111222
  Serious: Yes (Hospitalization)
  Sender: FDA-Public Use
  Company Number: 1000023748

PATIENT
  Age: 55 Year
  Sex: Female

DRUGS (6)
  1. ALPRAZOLAM [Concomitant]
  2. ZOMIG [Concomitant]
  3. SINGULAIR [Concomitant]
  4. DALIRESP [Suspect]
     Indication: ASTHMA
     Dosage: 500 MCG (500 MCG, 1 IN 1 D) ORAL
     Route: 048
     Dates: start: 20110901, end: 20110901
  5. THYROID TAB [Concomitant]
  6. HYDROCORT (HYDROCORT) [Concomitant]

REACTIONS (2)
  - BURNING SENSATION [None]
  - ASTHMA [None]
